FAERS Safety Report 6058747-X (Version None)
Quarter: 2009Q1

REPORT INFORMATION
  Report Type: 
  Country: None (occurrence: None)
  Receive Date: 20090130
  Receipt Date: 20090120
  Transmission Date: 20090719
  Serious: Yes (Other)
  Sender: FDA-Public Use
  Company Number: US-PFIZER INC-2009158005

PATIENT
  Sex: Male
  Weight: 72.109 kg

DRUGS (8)
  1. DILANTIN-125 [Suspect]
     Indication: GRAND MAL CONVULSION
     Dosage: 300 MG, 1X/DAY
  2. MILK THISTLE [Suspect]
     Indication: PROPHYLAXIS
     Dosage: UNK
     Dates: start: 20080101
  3. ALKA-SELTZER [Concomitant]
     Dosage: UNK
  4. ADVIL LIQUI-GELS [Concomitant]
     Indication: INSOMNIA
     Dosage: UNK
  5. TYLENOL [Concomitant]
     Indication: INSOMNIA
     Dosage: UNK
  6. MULTI-VITAMINS [Concomitant]
     Dosage: UNK
  7. FISH OIL [Concomitant]
     Dosage: UNK
  8. PRAVASTATIN [Concomitant]
     Indication: BLOOD CHOLESTEROL
     Dosage: UNK

REACTIONS (3)
  - DRUG LEVEL DECREASED [None]
  - GRAND MAL CONVULSION [None]
  - HEPATIC ENZYME INCREASED [None]
